FAERS Safety Report 21406844 (Version 1)
Quarter: 2022Q4

REPORT INFORMATION
  Report Type: Spontaneous
  Country: GB (occurrence: GB)
  Receive Date: 20221004
  Receipt Date: 20221004
  Transmission Date: 20230112
  Serious: Yes (Hospitalization)
  Sender: FDA-Public Use
  Company Number: None

PATIENT

DRUGS (1)
  1. KETAMINE HYDROCHLORIDE [Suspect]
     Active Substance: KETAMINE HYDROCHLORIDE
     Dosage: 365 MG
     Dates: start: 20220728, end: 20220728

REACTIONS (4)
  - Incorrect dose administered [Unknown]
  - Overdose [Unknown]
  - Respiratory arrest [Unknown]
  - Aspiration [Unknown]

NARRATIVE: CASE EVENT DATE: 20220728
